FAERS Safety Report 5531402-8 (Version None)
Quarter: 2007Q4

REPORT INFORMATION
  Report Type: 
  Country: None (occurrence: None)
  Receive Date: 20071203
  Receipt Date: 20071119
  Transmission Date: 20080405
  Serious: Yes (Other)
  Sender: FDA-Public Use
  Company Number: IT-BRISTOL-MYERS SQUIBB COMPANY-13989033

PATIENT
  Age: 76 Year
  Sex: Female

DRUGS (4)
  1. IFOSFAMIDE [Suspect]
     Indication: SARCOMA UTERUS
     Dosage: 1 DOSAGE FORM: 1.8G/M(SUPP)2.ADMINISTERED ON DAYS 1 TO 5
  2. IFOSFAMIDE [Suspect]
     Indication: HYPOALBUMINAEMIA
     Dosage: 1 DOSAGE FORM: 1.8G/M(SUPP)2.ADMINISTERED ON DAYS 1 TO 5
  3. EPIRUBICIN [Suspect]
     Indication: SARCOMA UTERUS
  4. EPIRUBICIN [Suspect]
     Indication: HYPOALBUMINAEMIA

REACTIONS (4)
  - BLOOD CREATINE INCREASED [None]
  - CEREBROVASCULAR DISORDER [None]
  - ENCEPHALOPATHY [None]
  - VAGINAL HAEMORRHAGE [None]
